FAERS Safety Report 15280737 (Version 1)
Quarter: 2018Q3

REPORT INFORMATION
  Report Type: Spontaneous
  Country: PL (occurrence: PL)
  Receive Date: 20180815
  Receipt Date: 20180815
  Transmission Date: 20181010
  Serious: Yes (Other)
  Sender: FDA-Public Use
  Company Number: PHHY2018PL064674

PATIENT
  Sex: Male

DRUGS (1)
  1. AMOXICLAV [Suspect]
     Active Substance: AMOXICILLIN\CLAVULANIC ACID
     Indication: PNEUMONIA
     Dosage: UNK UNK, BID
     Route: 048
     Dates: start: 20180724, end: 20180806

REACTIONS (1)
  - Platelet count decreased [Recovered/Resolved]
